FAERS Safety Report 14234063 (Version 1)
Quarter: 2017Q4

REPORT INFORMATION
  Report Type: Spontaneous
  Country: RU (occurrence: RU)
  Receive Date: 20171128
  Receipt Date: 20171128
  Transmission Date: 20180321
  Serious: Yes (Hospitalization, Other)
  Sender: FDA-Public Use
  Company Number: RU-ASTRAZENECA-2017SF20223

PATIENT
  Age: 56 Year
  Sex: Male
  Weight: 80 kg

DRUGS (7)
  1. BRILINTA [Suspect]
     Active Substance: TICAGRELOR
     Indication: MYOCARDIAL INFARCTION
     Route: 048
     Dates: start: 20171026
  2. BETALOC ZOK [Concomitant]
     Active Substance: METOPROLOL SUCCINATE
  3. ATORIS [Concomitant]
     Active Substance: ATORVASTATIN CALCIUM
  4. CORDARONE [Concomitant]
     Active Substance: AMIODARONE HYDROCHLORIDE
  5. BRILINTA [Suspect]
     Active Substance: TICAGRELOR
     Indication: MYOCARDIAL INFARCTION
     Route: 048
  6. VEROSPIRON [Concomitant]
     Active Substance: SPIRONOLACTONE
  7. THROMBO ASS [Concomitant]
     Active Substance: ASPIRIN

REACTIONS (6)
  - Chest pain [Recovered/Resolved]
  - Intentional product misuse [Not Recovered/Not Resolved]
  - Nodule [Not Recovered/Not Resolved]
  - Hypotension [Not Recovered/Not Resolved]
  - Coronary artery occlusion [Unknown]
  - Thyroid mass [Not Recovered/Not Resolved]

NARRATIVE: CASE EVENT DATE: 20171026
